FAERS Safety Report 18864485 (Version 36)
Quarter: 2025Q4

REPORT INFORMATION
  Report Type: Report from Study
  Country: CO (occurrence: CO)
  Receive Date: 20210209
  Receipt Date: 20251210
  Transmission Date: 20260117
  Serious: Yes (Life-Threatening)
  Sender: TAKEDA
  Company Number: CO-TAKEDA-CO202018003

PATIENT
  Age: 47 Year
  Sex: Female
  Weight: 75 kg

DRUGS (14)
  1. ICATIBANT [Suspect]
     Active Substance: ICATIBANT ACETATE
     Indication: Hereditary angioedema
     Dosage: UNK
  2. ICATIBANT [Suspect]
     Active Substance: ICATIBANT ACETATE
     Dosage: UNK
  3. ICATIBANT [Suspect]
     Active Substance: ICATIBANT ACETATE
     Dosage: 1 DOSAGE FORM
  4. ICATIBANT [Suspect]
     Active Substance: ICATIBANT ACETATE
     Dosage: 30 MILLIGRAM
  5. ICATIBANT [Suspect]
     Active Substance: ICATIBANT ACETATE
     Dosage: 30 MILLIGRAM
  6. ICATIBANT [Suspect]
     Active Substance: ICATIBANT ACETATE
     Dosage: UNK
  7. ICATIBANT [Suspect]
     Active Substance: ICATIBANT ACETATE
     Dosage: UNK
  8. ICATIBANT [Suspect]
     Active Substance: ICATIBANT ACETATE
     Dosage: 30 MILLIGRAM/3 MILLILITER
  9. TAKHZYRO [Suspect]
     Active Substance: LANADELUMAB-FLYO
     Indication: Hereditary angioedema
     Dosage: UNK UNK, Q4WEEKS
     Dates: start: 20220514
  10. TAKHZYRO [Suspect]
     Active Substance: LANADELUMAB-FLYO
     Dosage: 300 MILLIGRAM, Q2WEEKS
  11. TAKHZYRO [Suspect]
     Active Substance: LANADELUMAB-FLYO
     Dosage: UNK, UNK, Q2WEEKS
  12. TAKHZYRO [Suspect]
     Active Substance: LANADELUMAB-FLYO
     Dosage: UNK
  13. TAKHZYRO [Suspect]
     Active Substance: LANADELUMAB-FLYO
     Dosage: UNK UNK, 2/MONTH
  14. TAKHZYRO [Suspect]
     Active Substance: LANADELUMAB-FLYO
     Dosage: 300 MILLIGRAM/2 MILLILITER, 2/MONTH

REACTIONS (25)
  - Hereditary angioedema [Recovered/Resolved]
  - Malaise [Recovered/Resolved]
  - General physical health deterioration [Recovered/Resolved]
  - Inappropriate schedule of product administration [Unknown]
  - Pruritus [Recovering/Resolving]
  - Headache [Recovering/Resolving]
  - Asthenia [Recovered/Resolved]
  - Weight increased [Unknown]
  - Body height decreased [Unknown]
  - Fall [Recovering/Resolving]
  - Contusion [Recovering/Resolving]
  - Pain [Recovering/Resolving]
  - Inflammation [Recovering/Resolving]
  - Mobility decreased [Recovering/Resolving]
  - Neck pain [Recovering/Resolving]
  - Pain in extremity [Recovering/Resolving]
  - Localised oedema [Recovering/Resolving]
  - Oedema peripheral [Recovered/Resolved]
  - Product prescribing error [Not Recovered/Not Resolved]
  - Treatment noncompliance [Not Recovered/Not Resolved]
  - Product use issue [Not Recovered/Not Resolved]
  - Erythema [Recovered/Resolved]
  - Rash [Not Recovered/Not Resolved]
  - Dizziness [Recovered/Resolved]
  - Urticaria [Recovered/Resolved]

NARRATIVE: CASE EVENT DATE: 20201217
